FAERS Safety Report 8585115-9 (Version None)
Quarter: 2012Q3

REPORT INFORMATION
  Report Type: 
  Country: None (occurrence: None)
  Receive Date: 20120810
  Receipt Date: 20120730
  Transmission Date: 20120928
  Serious: Yes (Other)
  Sender: FDA-Public Use
  Company Number: DE-GENZYME-THYM-1003320

PATIENT
  Sex: Female
  Weight: 72 kg

DRUGS (6)
  1. CEFTRIAXONE [Concomitant]
     Indication: TRANSPLANT
     Dosage: 2 G, UNK
     Route: 065
     Dates: start: 20120618, end: 20120620
  2. SOLU-DACORTIN [Concomitant]
     Indication: TRANSPLANT
     Dosage: 250 MG, UNK
     Route: 065
     Dates: start: 20120618
  3. ANGIOTENSIN II [Concomitant]
     Indication: TRANSPLANT
     Dosage: 1500 IU, UNK
     Route: 065
     Dates: start: 20120618, end: 20120620
  4. ARMODAFINIL [Concomitant]
     Indication: TRANSPLANT
     Dosage: 100 MG, UNK
     Route: 065
     Dates: start: 20120618, end: 20120620
  5. THYMOGLOBULIN [Suspect]
     Indication: RENAL TRANSPLANT
     Dosage: 100 MG, ONCE
     Route: 065
     Dates: start: 20120618, end: 20120618
  6. CYMEVEN [Concomitant]
     Indication: TRANSPLANT
     Dosage: 100 MG, UNK
     Route: 065
     Dates: start: 20120618, end: 20120620

REACTIONS (3)
  - THROMBOCYTOPENIA [None]
  - SYSTEMIC INFLAMMATORY RESPONSE SYNDROME [None]
  - BLOOD PRESSURE DECREASED [None]
